FAERS Safety Report 6110837-9 (Version None)
Quarter: 2009Q1

REPORT INFORMATION
  Report Type: 
  Country: None (occurrence: None)
  Receive Date: 20090311
  Receipt Date: 20090306
  Transmission Date: 20090719
  Serious: No
  Sender: FDA-Public Use
  Company Number: CA-JNJFOC-20090301585

PATIENT
  Sex: Female

DRUGS (2)
  1. FENTANYL [Suspect]
     Indication: FIBROMYALGIA
     Route: 062
  2. FENTANYL [Suspect]
     Indication: SYSTEMIC LUPUS ERYTHEMATOSUS
     Route: 062

REACTIONS (3)
  - DRUG EXPOSURE DURING PREGNANCY [None]
  - INAPPROPRIATE SCHEDULE OF DRUG ADMINISTRATION [None]
  - PAIN [None]
